FAERS Safety Report 6813292-6 (Version None)
Quarter: 2010Q3

REPORT INFORMATION
  Report Type: 
  Country: None (occurrence: None)
  Receive Date: 20100701
  Receipt Date: 20100622
  Transmission Date: 20110219
  Serious: Yes (Other)
  Sender: FDA-Public Use
  Company Number: US-PFIZER INC-2010078619

PATIENT
  Sex: Female
  Weight: 86 kg

DRUGS (3)
  1. LIPITOR [Suspect]
     Indication: BLOOD CHOLESTEROL INCREASED
     Dosage: 40 MG, 1X/DAY
     Route: 048
     Dates: start: 19890101
  2. LIPITOR [Suspect]
     Dosage: 20 MG, 1X/DAY
     Dates: start: 19890101
  3. LYRICA [Concomitant]
     Indication: FIBROMYALGIA
     Dosage: 50 MG, UNK
     Dates: start: 20070101

REACTIONS (2)
  - ARRHYTHMIA [None]
  - FIBROMYALGIA [None]
